FAERS Safety Report 7357299-1 (Version None)
Quarter: 2011Q1

REPORT INFORMATION
  Report Type: 
  Country: None (occurrence: None)
  Receive Date: 20110308
  Receipt Date: 20110223
  Transmission Date: 20110831
  Serious: Yes (Death)
  Sender: FDA-Public Use
  Company Number: 2011000923

PATIENT
  Age: 83 Year
  Sex: Female

DRUGS (1)
  1. TARCEVA [Suspect]
     Dosage: (150 MG,DAILY), ORAL
     Route: 048
     Dates: start: 20101007

REACTIONS (2)
  - CARDIOVASCULAR DISORDER [None]
  - RESPIRATORY FAILURE [None]
